FAERS Safety Report 15964530 (Version 1)
Quarter: 2019Q1

REPORT INFORMATION
  Report Type: Spontaneous
  Country: US (occurrence: US)
  Receive Date: 20190124
  Receipt Date: 20190124
  Transmission Date: 20190417
  Serious: Yes (Other)
  Sender: FDA-Public Use
  Company Number: None

PATIENT
  Age: 29 Year
  Sex: Female
  Weight: 54.43 kg

DRUGS (7)
  1. MAGNESIUM [Concomitant]
     Active Substance: MAGNESIUM
  2. BENADRYL [Concomitant]
     Active Substance: DIPHENHYDRAMINE HYDROCHLORIDE
  3. BOTOX [Suspect]
     Active Substance: ONABOTULINUMTOXINA
     Indication: MIGRAINE
     Dosage: ?          QUANTITY:155 IU INTERNATIONAL UNIT(S);OTHER ROUTE:INJECTION?
     Dates: start: 20181011
  4. VITAMIN B12 [Concomitant]
     Active Substance: CYANOCOBALAMIN
  5. VITAMIN B COMPLEX [Concomitant]
     Active Substance: CYANOCOBALAMIN\DEXPANTHENOL\NIACINAMIDE\PYRIDOXINE HYDROCHLORIDE\RIBOFLAVIN 5^-PHOSPHATE SODIUM\THIAMINE HYDROCHLORIDE\VITAMIN B COMPLEX
  6. VITAMIN D [Concomitant]
     Active Substance: CHOLECALCIFEROL
  7. CLARTAN [Concomitant]

REACTIONS (7)
  - Dry eye [None]
  - Loss of personal independence in daily activities [None]
  - Muscular weakness [None]
  - Vision blurred [None]
  - Quality of life decreased [None]
  - Vertigo [None]
  - Mydriasis [None]

NARRATIVE: CASE EVENT DATE: 20181014
